FAERS Safety Report 9097287 (Version 1)
Quarter: 2013Q1

REPORT INFORMATION
  Report Type: Spontaneous
  Country: US (occurrence: US)
  Receive Date: 20130212
  Receipt Date: 20130212
  Transmission Date: 20140127
  Serious: Yes (Hospitalization)
  Sender: FDA-Public Use
  Company Number: US-BAYER-2013-014021

PATIENT
  Age: 71 Year
  Sex: Female
  Weight: 54.4 kg

DRUGS (28)
  1. CIPRO [Suspect]
     Indication: URINARY TRACT INFECTION
     Dosage: UNK
     Dates: start: 20120328, end: 20120404
  2. OBINUTUZUMAB [Suspect]
     Dosage: 1000 MG, Q3WK
     Route: 042
     Dates: start: 20120312
  3. VINCRISTINE [Suspect]
     Indication: DIFFUSE LARGE B-CELL LYMPHOMA
     Dosage: 2 MG, Q3WK
     Route: 042
     Dates: start: 20120313
  4. PREDNISONE [Suspect]
     Indication: DIFFUSE LARGE B-CELL LYMPHOMA
     Dosage: 100 MG, Q3WK
     Route: 048
     Dates: start: 20120312
  5. CYCLOPHOSPHAMIDE [Suspect]
     Indication: DIFFUSE LARGE B-CELL LYMPHOMA
     Dosage: 1000 MG, Q3WK
     Route: 042
     Dates: start: 20120313
  6. DOXORUBICIN [Suspect]
     Indication: DIFFUSE LARGE B-CELL LYMPHOMA
     Dosage: 820 MG, Q3WK
     Route: 042
     Dates: start: 20120313
  7. ASPIRINE [Concomitant]
     Indication: PROPHYLAXIS
     Dosage: UNK
     Dates: start: 20080226
  8. COZAAR [Concomitant]
     Indication: HYPERTENSION
     Dosage: UNK
     Dates: start: 20100528
  9. EXELON [Concomitant]
     Indication: COGNITIVE DISORDER
     Dosage: UNK
     Dates: start: 2010
  10. CLONAZEPAM [Concomitant]
     Indication: MUSCLE SPASMS
     Dosage: UNK
     Dates: start: 2010
  11. HYDROCHLOROTHIAZIDE [Concomitant]
     Indication: HYPERTENSION
     Dosage: UNK
     Dates: start: 2010
  12. LEVOTHYROXINE [Concomitant]
     Indication: HYPOTHYROIDISM
     Dosage: UNK
  13. LOSARTAN [Concomitant]
     Indication: HYPERTENSION
     Dosage: UNK
     Dates: start: 2010
  14. PRILOSEC [Concomitant]
     Indication: PROPHYLAXIS
     Dosage: UNK
     Dates: start: 2010
  15. SINEMET [Concomitant]
     Indication: PARKINSON^S DISEASE
     Dosage: UNK
     Dates: start: 2010
  16. TYLENOL [PARACETAMOL] [Concomitant]
     Dosage: UNK
     Dates: start: 20120328, end: 20120328
  17. TYLENOL [PARACETAMOL] [Concomitant]
     Dosage: UNK
     Dates: start: 20120404, end: 20120404
  18. TYLENOL [PARACETAMOL] [Concomitant]
     Dosage: UNK
     Dates: start: 20120502, end: 20120502
  19. BENADRYL [DIPHENHYDRAMINE HYDROCHLORIDE] [Concomitant]
     Dosage: UNK
     Dates: start: 20120328, end: 20120328
  20. BENADRYL [DIPHENHYDRAMINE HYDROCHLORIDE] [Concomitant]
     Dosage: UNK
     Dates: start: 20120404, end: 20120404
  21. BENADRYL [DIPHENHYDRAMINE HYDROCHLORIDE] [Concomitant]
     Dosage: UNK
     Dates: start: 20120502, end: 20120502
  22. ZOFRAN [Concomitant]
     Dosage: UNK
     Dates: start: 20120404, end: 20120404
  23. ZOFRAN [Concomitant]
     Dosage: UNK
     Dates: start: 20120502, end: 20120502
  24. HYDROCORTISONE [HYDROCORTISONE] [Concomitant]
     Dosage: UNK
     Dates: start: 20120328, end: 20120328
  25. ZANTAC [Concomitant]
     Indication: PROPHYLAXIS
     Dosage: UNK
     Dates: start: 201204
  26. ZANTAC [Concomitant]
     Indication: PROPHYLAXIS
     Dosage: UNK
     Dates: start: 20120514, end: 20120514
  27. FENTANYL CITRATE [Concomitant]
     Indication: BACK PAIN
  28. MAJIC MOUTHWASH (NYSTATIN, BENADRYL, HYDROCORTISONE) [Concomitant]
     Dosage: UNK
     Dates: start: 20120404, end: 20120415

REACTIONS (2)
  - Diarrhoea [Recovered/Resolved]
  - Diarrhoea [Recovered/Resolved]
